FAERS Safety Report 25385768 (Version 5)
Quarter: 2025Q3

REPORT INFORMATION
  Report Type: Spontaneous
  Country: JP (occurrence: JP)
  Receive Date: 20250602
  Receipt Date: 20250711
  Transmission Date: 20251021
  Serious: Yes (Life-Threatening, Hospitalization)
  Sender: EISAI
  Company Number: JP-Eisai-202502676_LEN-RCC_P_1

PATIENT
  Age: 72 Year
  Sex: Male

DRUGS (5)
  1. LENVIMA [Suspect]
     Active Substance: LENVATINIB
     Indication: Renal cell carcinoma
     Dates: start: 20250429, end: 20250508
  2. LENVIMA [Suspect]
     Active Substance: LENVATINIB
     Dates: start: 20250515, end: 20250515
  3. LENVIMA [Suspect]
     Active Substance: LENVATINIB
     Dates: start: 20250516, end: 20250516
  4. LENVIMA [Suspect]
     Active Substance: LENVATINIB
     Dates: start: 20250522, end: 20250522
  5. KEYTRUDA [Concomitant]
     Active Substance: PEMBROLIZUMAB
     Indication: Renal cell carcinoma
     Dates: start: 20250425, end: 20250425

REACTIONS (2)
  - Meningitis noninfective [Recovered/Resolved]
  - Decreased appetite [Recovered/Resolved]

NARRATIVE: CASE EVENT DATE: 20250508
